FAERS Safety Report 20198686 (Version 1)
Quarter: 2021Q4

REPORT INFORMATION
  Report Type: Spontaneous
  Country: US (occurrence: None)
  Receive Date: 20211216
  Receipt Date: 20211216
  Transmission Date: 20220303
  Serious: Yes (Life-Threatening)
  Sender: FDA-Public Use
  Company Number: None

PATIENT
  Age: 43 Year
  Sex: Female
  Weight: 74.25 kg

DRUGS (1)
  1. REGEN-COV [Suspect]
     Active Substance: CASIRIVIMAB\IMDEVIMAB
     Indication: COVID-19
     Dates: start: 20211216, end: 20211216

REACTIONS (7)
  - Paraesthesia [None]
  - Chest discomfort [None]
  - Head discomfort [None]
  - Heart rate increased [None]
  - Dizziness [None]
  - Nausea [None]
  - Blood pressure increased [None]

NARRATIVE: CASE EVENT DATE: 20211216
